FAERS Safety Report 5017585-7 (Version None)
Quarter: 2006Q2

REPORT INFORMATION
  Report Type: 
  Country: None (occurrence: None)
  Receive Date: 20060601
  Receipt Date: 20060601
  Transmission Date: 20061013
  Serious: Yes (Life-Threatening, Hospitalization)
  Sender: FDA-Public Use
  Company Number: None

PATIENT
  Age: 85 Year
  Sex: Female
  Weight: 62.5964 kg

DRUGS (10)
  1. SPIRONOLACTONE [Suspect]
     Indication: CARDIAC FAILURE CONGESTIVE
     Dosage: 100 MG PO DAILY   MONTHS
     Route: 048
  2. SPIRONOLACTONE [Suspect]
     Indication: HYPOKALAEMIA
     Dosage: 100 MG PO DAILY   MONTHS
     Route: 048
  3. RYTHMOL [Concomitant]
  4. PREMARIN [Concomitant]
  5. WARFARIN [Concomitant]
  6. LASIX [Concomitant]
  7. PREDNISONE [Concomitant]
  8. GLYPAZIDE [Concomitant]
  9. QUININE SULFATE [Concomitant]
  10. THYROXIN [Concomitant]

REACTIONS (3)
  - ATRIAL FIBRILLATION [None]
  - CARDIAC FAILURE CONGESTIVE [None]
  - DYSPNOEA [None]
